FAERS Safety Report 5939728-0 (Version None)
Quarter: 2008Q4

REPORT INFORMATION
  Report Type: 
  Country: None (occurrence: None)
  Receive Date: 20081031
  Receipt Date: 20081031
  Transmission Date: 20090506
  Serious: Yes (Disabling)
  Sender: FDA-Public Use
  Company Number: None

PATIENT
  Age: 57 Year
  Sex: Male
  Weight: 95.2554 kg

DRUGS (1)
  1. FLUTICASONE PROPIONATE [Suspect]
     Indication: SINUS OPERATION
     Dosage: 2 SPRAYS EACH DAILY NASAL
     Route: 045
     Dates: start: 20080101, end: 20080815

REACTIONS (4)
  - NASAL DISCOMFORT [None]
  - NASAL DRYNESS [None]
  - NASAL MUCOSAL DISCOLOURATION [None]
  - RHINITIS [None]
